FAERS Safety Report 5287736-8 (Version None)
Quarter: 2007Q2

REPORT INFORMATION
  Report Type: 
  Country: None (occurrence: None)
  Receive Date: 20070402
  Receipt Date: 20070402
  Transmission Date: 20071010
  Serious: Yes (Life-Threatening, Hospitalization, Disabling)
  Sender: FDA-Public Use
  Company Number: None

PATIENT
  Age: 80 Year
  Sex: Male

DRUGS (3)
  1. DEXTROSE 5% IN WATER IN SEMI-RIGID CONTAINER INJ [Suspect]
     Dosage: 250CC  IV
     Route: 042
     Dates: start: 20070323, end: 20070323
  2. DEXTROSE 5% IN WATER IN SEMI-RIGID CONTAINER INJ [Suspect]
     Dosage: 100CC  IV
     Route: 042
     Dates: start: 20070323, end: 20070323
  3. DEXTROSE 5% IN WATER IN SEMI-RIGID CONTAINER INJ [Suspect]

REACTIONS (4)
  - CARDIO-RESPIRATORY ARREST [None]
  - LOSS OF CONSCIOUSNESS [None]
  - MEDICATION ERROR [None]
  - PHARMACEUTICAL PRODUCT COMPLAINT [None]
